FAERS Safety Report 5809794-1 (Version None)
Quarter: 2008Q3

REPORT INFORMATION
  Report Type: 
  Country: None (occurrence: None)
  Receive Date: 20080715
  Receipt Date: 20080710
  Transmission Date: 20090109
  Serious: Yes (Hospitalization)
  Sender: FDA-Public Use
  Company Number: US-ASTRAZENECA-2008UW13856

PATIENT
  Age: 68 Year
  Sex: Female

DRUGS (7)
  1. CRESTOR [Suspect]
     Route: 048
     Dates: start: 20080401
  2. MS CONTIN [Concomitant]
     Route: 048
  3. COUMADIN [Concomitant]
     Route: 048
  4. LASIX [Concomitant]
     Route: 048
  5. DILTIAZEM HCL [Concomitant]
     Route: 048
  6. LISINOPRIL [Concomitant]
     Route: 048
  7. DIGOXIN [Concomitant]
     Route: 048

REACTIONS (6)
  - ASTHENIA [None]
  - BLOOD CREATINE PHOSPHOKINASE INCREASED [None]
  - CHROMATURIA [None]
  - MUSCLE SPASMS [None]
  - MYOGLOBIN BLOOD INCREASED [None]
  - RHABDOMYOLYSIS [None]
